FAERS Safety Report 25622342 (Version 1)
Quarter: 2025Q3

REPORT INFORMATION
  Report Type: Spontaneous
  Country: JP (occurrence: JP)
  Receive Date: 20250730
  Receipt Date: 20250730
  Transmission Date: 20251020
  Serious: Yes (Other)
  Sender: MERCK SHARP & DOHME LLC
  Company Number: JP-009507513-2312030

PATIENT
  Age: 69 Year
  Sex: Male

DRUGS (1)
  1. PEMBROLIZUMAB [Suspect]
     Active Substance: PEMBROLIZUMAB
     Indication: Lung adenocarcinoma stage IV

REACTIONS (5)
  - Joint destruction [Unknown]
  - Immune-mediated hypothyroidism [Unknown]
  - Adrenocorticotropic hormone deficiency [Unknown]
  - Immune-mediated dermatitis [Unknown]
  - Immune-mediated arthritis [Unknown]
